FAERS Safety Report 8744369 (Version 2)
Quarter: 2012Q4

REPORT INFORMATION
  Report Type: 
  Country: US (occurrence: US)
  Receive Date: 20120825
  Receipt Date: 20120905
  Transmission Date: 20130627
  Serious: No
  Sender: FDA-Public Use
  Company Number: US-009507513-1207USA008631

PATIENT

DRUGS (1)
  1. IMPLANON [Suspect]
     Indication: CONTRACEPTION
     Dosage: 1 DF, UNK
     Route: 058
     Dates: start: 200908

REACTIONS (7)
  - Pain in extremity [Unknown]
  - Paraesthesia [Unknown]
  - Incorrect drug administration duration [Unknown]
  - Complication of device insertion [Unknown]
  - Device difficult to use [Unknown]
  - Hypoaesthesia [Unknown]
  - Medical device complication [Unknown]
